FAERS Safety Report 9554343 (Version 1)
Quarter: 2013Q3

REPORT INFORMATION
  Report Type: Spontaneous
  Country: GB (occurrence: GB)
  Receive Date: 20130925
  Receipt Date: 20130925
  Transmission Date: 20140515
  Serious: Yes (Other)
  Sender: FDA-Public Use
  Company Number: GB-TEVA-433261ISR

PATIENT
  Age: 22 Year
  Sex: Female
  Weight: 70 kg

DRUGS (6)
  1. DICLOFENAC [Suspect]
     Route: 048
     Dates: start: 20130719, end: 20130722
  2. LAMOTRIGINE [Concomitant]
     Indication: EPILEPSY
     Dosage: 250MG IN THE MORNING, 225MG IN THE EVENING.?SINCE CHILDHOOD.
     Route: 048
  3. CLOBAZAM [Concomitant]
     Dosage: SINCE CHILDHOOD.
     Route: 048
  4. MULTIVITAMIN [Concomitant]
     Indication: INADEQUATE DIET
     Route: 048
  5. GAVISCON [Concomitant]
  6. SENOKOT [Concomitant]

REACTIONS (2)
  - Convulsion [Recovered/Resolved]
  - Condition aggravated [Recovered/Resolved]
